FAERS Safety Report 9594347 (Version 2)
Quarter: 2013Q4

REPORT INFORMATION
  Report Type: Spontaneous
  Country: GB (occurrence: GB)
  Receive Date: 20131004
  Receipt Date: 20131004
  Transmission Date: 20140711
  Serious: Yes (Other)
  Sender: FDA-Public Use
  Company Number: GB-MERCK-1309GBR002734

PATIENT
  Age: 33 Year
  Sex: Female

DRUGS (3)
  1. PEGINTERFERON ALFA-2B [Suspect]
     Indication: HEPATITIS C
     Dosage: UNK
     Route: 058
     Dates: start: 20130102
  2. RIBAVIRIN [Suspect]
     Indication: HEPATITIS C
     Dosage: UNK
     Route: 048
     Dates: start: 20130102
  3. INCIVO [Suspect]
     Indication: HEPATITIS C
     Dosage: 750 MG, 3 IN 1 DAY
     Route: 048
     Dates: start: 20130102

REACTIONS (6)
  - Depression [Not Recovered/Not Resolved]
  - Body temperature increased [Recovering/Resolving]
  - Pain [Not Recovered/Not Resolved]
  - Pyrexia [Not Recovered/Not Resolved]
  - Pruritus [Not Recovered/Not Resolved]
  - Chills [Recovering/Resolving]
